FAERS Safety Report 6574569-5 (Version None)
Quarter: 2010Q1

REPORT INFORMATION
  Report Type: 
  Country: None (occurrence: None)
  Receive Date: 20100209
  Receipt Date: 20100202
  Transmission Date: 20100710
  Serious: Yes (Hospitalization)
  Sender: FDA-Public Use
  Company Number: DE-WYE-G04668109

PATIENT
  Sex: Female
  Weight: 50 kg

DRUGS (6)
  1. TREVILOR RETARD [Suspect]
     Indication: DEPRESSION
     Route: 048
     Dates: start: 20090813, end: 20090901
  2. ACETYLSALICYLIC ACID [Concomitant]
  3. LEVOTHYROXINE SODIUM [Concomitant]
     Indication: AUTOIMMUNE THYROIDITIS
     Route: 048
  4. VENLAFAXINE HCL [Suspect]
     Route: 048
     Dates: start: 20090901, end: 20091001
  5. OMEPRAZOLE [Concomitant]
     Indication: GASTROOESOPHAGEAL REFLUX DISEASE
     Route: 048
  6. OMEPRAZOLE [Concomitant]
     Indication: HIATUS HERNIA

REACTIONS (8)
  - ATAXIA [None]
  - BRAIN INJURY [None]
  - DRUG INEFFECTIVE [None]
  - FALL [None]
  - HYPONATRAEMIA [None]
  - MEMORY IMPAIRMENT [None]
  - NAUSEA [None]
  - VERTIGO [None]
